FAERS Safety Report 20013332 (Version 1)
Quarter: 2021Q4

REPORT INFORMATION
  Report Type: Report from Study
  Country: US (occurrence: US)
  Receive Date: 20211029
  Receipt Date: 20211029
  Transmission Date: 20220303
  Serious: Yes (Death, Other)
  Sender: FDA-Public Use
  Company Number: US-TAKEDA-2021TUS067164

PATIENT
  Age: 82 Year
  Sex: Male

DRUGS (1)
  1. LANTHANUM CARBONATE [Suspect]
     Active Substance: LANTHANUM CARBONATE
     Indication: Product used for unknown indication
     Dosage: 2 DOSAGE FORM, TID
     Route: 048
     Dates: start: 20210131, end: 20210928

REACTIONS (1)
  - Death [Fatal]

NARRATIVE: CASE EVENT DATE: 20210928
